FAERS Safety Report 7547192-3 (Version None)
Quarter: 2011Q2

REPORT INFORMATION
  Report Type: 
  Country: None (occurrence: None)
  Receive Date: 20110614
  Receipt Date: 20110601
  Transmission Date: 20111010
  Serious: Yes (Other)
  Sender: FDA-Public Use
  Company Number: GB-UCBSA-034466

PATIENT
  Sex: Female

DRUGS (1)
  1. NEUPRO [Suspect]
     Dates: start: 20110511

REACTIONS (1)
  - ALOPECIA [None]
